FAERS Safety Report 7113777-1 (Version None)
Quarter: 2010Q4

REPORT INFORMATION
  Report Type: 
  Country: None (occurrence: None)
  Receive Date: 20101119
  Receipt Date: 20101110
  Transmission Date: 20110411
  Serious: Yes (Hospitalization)
  Sender: FDA-Public Use
  Company Number: CA-JNJFOC-20101104569

PATIENT
  Sex: Male
  Weight: 101.8 kg

DRUGS (5)
  1. REMICADE [Suspect]
     Indication: DIABETES MELLITUS
     Route: 042
  2. REMICADE [Suspect]
     Indication: BEHCET'S SYNDROME
     Route: 042
  3. REMICADE [Suspect]
     Indication: COLITIS ULCERATIVE
     Route: 042
  4. CIPROX [Suspect]
     Indication: ROTAVIRUS INFECTION
     Route: 065
  5. CIPROX [Suspect]
     Indication: ADENOVIRUS INFECTION
     Route: 065

REACTIONS (4)
  - ADENOVIRUS INFECTION [None]
  - BEHCET'S SYNDROME [None]
  - DIARRHOEA HAEMORRHAGIC [None]
  - ROTAVIRUS INFECTION [None]
